FAERS Safety Report 12836046 (Version 1)
Quarter: 2016Q4

REPORT INFORMATION
  Report Type: Spontaneous
  Country: DK (occurrence: DK)
  Receive Date: 20161011
  Receipt Date: 20161011
  Transmission Date: 20170207
  Serious: Yes (Other)
  Sender: FDA-Public Use
  Company Number: DK-VALIDUS PHARMACEUTICALS LLC-DK-2016VAL002802

PATIENT
  Age: 57 Year
  Sex: Female

DRUGS (1)
  1. METOPROLOL TARTRATE. [Suspect]
     Active Substance: METOPROLOL TARTRATE
     Indication: STRESS CARDIOMYOPATHY
     Dosage: UNK
     Route: 042

REACTIONS (2)
  - Circulatory collapse [Unknown]
  - Product use issue [Unknown]
